FAERS Safety Report 10073802 (Version 2)
Quarter: 2014Q2

REPORT INFORMATION
  Report Type: Spontaneous
  Country: JP (occurrence: JP)
  Receive Date: 20140411
  Receipt Date: 20140411
  Transmission Date: 20141212
  Serious: Yes (Hospitalization)
  Sender: FDA-Public Use
  Company Number: PHJP2013JP000449

PATIENT
  Age: 38 Year
  Sex: Female

DRUGS (1)
  1. TEGRETOL TAB 200MG [Suspect]
     Indication: SCHIZOPHRENIA
     Dosage: UNK UKN, UNK
     Route: 048
     Dates: start: 201304, end: 20130705

REACTIONS (11)
  - Drug reaction with eosinophilia and systemic symptoms [Recovered/Resolved]
  - Erythema multiforme [Recovered/Resolved]
  - Body temperature increased [Recovered/Resolved]
  - Lymphadenopathy [Unknown]
  - Eosinophil count increased [Recovered/Resolved]
  - White blood cell count increased [Recovered/Resolved]
  - Hepatic function abnormal [Recovered/Resolved]
  - Cytomegalovirus infection [Unknown]
  - Rash [Recovered/Resolved]
  - Condition aggravated [Recovered/Resolved]
  - Alopecia areata [Unknown]
